FAERS Safety Report 7023138-1 (Version None)
Quarter: 2010Q3

REPORT INFORMATION
  Report Type: 
  Country: None (occurrence: None)
  Receive Date: 20100930
  Receipt Date: 20100924
  Transmission Date: 20110219
  Serious: Yes (Other)
  Sender: FDA-Public Use
  Company Number: CHPA2010US15139

PATIENT
  Age: 80 Year
  Sex: Female
  Weight: 73.923 kg

DRUGS (4)
  1. EX-LAX REG STR LAX PILLS SENNA (NCH) [Suspect]
     Indication: CONSTIPATION
     Dosage: 2 PILLS A DAY
     Route: 048
     Dates: start: 20100923, end: 20100923
  2. MIRALAX [Suspect]
     Dosage: UNK, UNK
     Route: 048
  3. FOSAMAX [Concomitant]
  4. MIACALCIN [Concomitant]

REACTIONS (3)
  - ABDOMINAL DISCOMFORT [None]
  - ABDOMINAL DISTENSION [None]
  - DRUG INEFFECTIVE FOR UNAPPROVED INDICATION [None]
